FAERS Safety Report 5015881-0 (Version None)
Quarter: 2006Q2

REPORT INFORMATION
  Report Type: 
  Country: None (occurrence: None)
  Receive Date: 20060526
  Receipt Date: 20060515
  Transmission Date: 20061013
  Serious: Yes (Hospitalization)
  Sender: FDA-Public Use
  Company Number: 2006EU001467

PATIENT
  Age: 35 Year
  Sex: Female

DRUGS (2)
  1. FK506 (TACROLIMUS CAPSULES) [Suspect]
     Indication: RENAL AND PANCREAS TRANSPLANT
     Dosage: 14 MG, UNKNOWN/D; ORAL
     Route: 048
     Dates: start: 20050112
  2. SIROLIMUS (SIROLIMUS) [Suspect]
     Indication: RENAL AND PANCREAS TRANSPLANT
     Dosage: 5 MG, UNKNOWN/D; ORAL
     Route: 048
     Dates: start: 20050112

REACTIONS (5)
  - DISEASE RECURRENCE [None]
  - ENTEROCOCCAL INFECTION [None]
  - ESCHERICHIA INFECTION [None]
  - PYELONEPHRITIS [None]
  - UROSEPSIS [None]
